FAERS Safety Report 21498855 (Version 1)
Quarter: 2022Q4

REPORT INFORMATION
  Report Type: Spontaneous
  Country: US (occurrence: None)
  Receive Date: 20221021
  Receipt Date: 20221021
  Transmission Date: 20230113
  Serious: No
  Sender: FDA-Public Use
  Company Number: None

PATIENT
  Age: 59 Year
  Sex: Male

DRUGS (1)
  1. OTEZLA [Suspect]
     Active Substance: APREMILAST

REACTIONS (3)
  - Nausea [None]
  - Weight decreased [None]
  - Decreased appetite [None]

NARRATIVE: CASE EVENT DATE: 20220714
